FAERS Safety Report 7026532-8 (Version None)
Quarter: 2010Q4

REPORT INFORMATION
  Report Type: 
  Country: None (occurrence: None)
  Receive Date: 20101004
  Receipt Date: 20100923
  Transmission Date: 20110411
  Serious: Yes (Hospitalization)
  Sender: FDA-Public Use
  Company Number: CA-JNJFOC-20100807031

PATIENT
  Sex: Male
  Weight: 175 kg

DRUGS (5)
  1. REMICADE [Suspect]
     Indication: RHEUMATOID ARTHRITIS
     Route: 042
  2. REMICADE [Suspect]
     Route: 042
  3. REMICADE [Suspect]
     Route: 042
  4. METHOTREXATE [Concomitant]
     Route: 030
  5. PLAQUENIL [Concomitant]

REACTIONS (5)
  - ABASIA [None]
  - BEDRIDDEN [None]
  - INFECTED SKIN ULCER [None]
  - KIDNEY INFECTION [None]
  - RHEUMATOID ARTHRITIS [None]
